FAERS Safety Report 18863362 (Version 2)
Quarter: 2022Q2

REPORT INFORMATION
  Report Type: Spontaneous
  Country: BR (occurrence: BR)
  Receive Date: 20210208
  Receipt Date: 20220628
  Transmission Date: 20220721
  Serious: Yes (Hospitalization, Other)
  Sender: FDA-Public Use
  Company Number: BR-GLAXOSMITHKLINE-BR2021AMR024776

PATIENT

DRUGS (2)
  1. CEFUROXIME [Suspect]
     Active Substance: CEFUROXIME
     Indication: Urinary tract infection
     Dosage: 500 MG, BID FOR 7 DAYS
     Dates: start: 20210130
  2. BACTRIM [Concomitant]
     Active Substance: SULFAMETHOXAZOLE\TRIMETHOPRIM
     Indication: Product used for unknown indication
     Dosage: UNK

REACTIONS (5)
  - Hypersensitivity [Unknown]
  - Near death experience [Unknown]
  - Blister [Unknown]
  - Eye swelling [Unknown]
  - Eye colour change [Unknown]

NARRATIVE: CASE EVENT DATE: 20210130
